FAERS Safety Report 7750443-3 (Version None)
Quarter: 2011Q3

REPORT INFORMATION
  Report Type: 
  Country: None (occurrence: None)
  Receive Date: 20110914
  Receipt Date: 20110907
  Transmission Date: 20111222
  Serious: Yes (Hospitalization)
  Sender: FDA-Public Use
  Company Number: US-ELI_LILLY_AND_COMPANY-US201109001969

PATIENT
  Sex: Male

DRUGS (9)
  1. JANUVIA [Concomitant]
  2. ADCIRCA [Suspect]
     Indication: COR PULMONALE CHRONIC
     Dosage: 40 MG, QD
     Dates: start: 20110509
  3. ZAROXOLYN [Concomitant]
  4. LISINOPRIL [Concomitant]
  5. ALLOPURINOL [Concomitant]
  6. GLIPIZIDE [Concomitant]
  7. ASPIRIN [Concomitant]
  8. ZANTAC [Concomitant]
  9. FUROSEMIDE [Concomitant]

REACTIONS (1)
  - BLOOD PRESSURE INCREASED [None]
